FAERS Safety Report 10940739 (Version 2)
Quarter: 2015Q2

REPORT INFORMATION
  Report Type: Spontaneous
  Country: US (occurrence: US)
  Receive Date: 20150322
  Receipt Date: 20150524
  Transmission Date: 20150821
  Serious: Yes (Other)
  Sender: FDA-Public Use
  Company Number: US-JNJFOC-20140501358

PATIENT
  Age: 38 Year
  Sex: Female

DRUGS (8)
  1. SPIRONOLACTONE. [Concomitant]
     Active Substance: SPIRONOLACTONE
  2. NEBIVOLOL [Concomitant]
     Active Substance: NEBIVOLOL
  3. BUMETANIDE. [Concomitant]
     Active Substance: BUMETANIDE
  4. INSULIN GLARGINE [Concomitant]
     Active Substance: INSULIN GLARGINE
     Route: 050
  5. LISINOPRIL. [Concomitant]
     Active Substance: LISINOPRIL
  6. DIGOXIN. [Concomitant]
     Active Substance: DIGOXIN
  7. INSULIN LISPRO [Concomitant]
     Active Substance: INSULIN LISPRO
     Route: 050
  8. CANAGLIFLOZIN [Suspect]
     Active Substance: CANAGLIFLOZIN
     Indication: TYPE 2 DIABETES MELLITUS
     Route: 048

REACTIONS (2)
  - Hypovolaemia [Recovered/Resolved]
  - Acute kidney injury [Recovered/Resolved]
